FAERS Safety Report 24194267 (Version 1)
Quarter: 2024Q3

REPORT INFORMATION
  Report Type: Spontaneous
  Country: US (occurrence: US)
  Receive Date: 20240809
  Receipt Date: 20240809
  Transmission Date: 20241017
  Serious: No
  Sender: PFIZER
  Company Number: US-PFIZER INC-PV202400102524

PATIENT
  Sex: Female

DRUGS (3)
  1. DUAVEE [Suspect]
     Active Substance: BAZEDOXIFENE ACETATE\ESTROGENS, CONJUGATED
     Dosage: 1 TABLET (0.45/20MG) , 1X/DAY
     Route: 048
  2. PROGESTERONE [Suspect]
     Active Substance: PROGESTERONE
     Dosage: ONE CAPSULE EVERY NIGHT
     Route: 048
  3. ESTRADIOL [Suspect]
     Active Substance: ESTRADIOL
     Dosage: ESTRADIOL 0.05 MG PATCH, SEMIWEEKLY, ON SUNDAY AND WEDNESDAY

REACTIONS (4)
  - Weight increased [Unknown]
  - Sedation [Unknown]
  - Malaise [Unknown]
  - Product use issue [Unknown]
